FAERS Safety Report 14092590 (Version 2)
Quarter: 2018Q1

REPORT INFORMATION
  Report Type: Report from Study
  Country: US (occurrence: US)
  Receive Date: 20171016
  Receipt Date: 20180104
  Transmission Date: 20180508
  Serious: No
  Sender: FDA-Public Use
  Company Number: PHEH2017US032919

PATIENT
  Sex: Male

DRUGS (1)
  1. COSENTYX [Suspect]
     Active Substance: SECUKINUMAB
     Indication: PRODUCT USED FOR UNKNOWN INDICATION
     Dosage: 300 MG, QMO
     Route: 058

REACTIONS (6)
  - Rash [Recovered/Resolved]
  - Stress [Unknown]
  - Weight decreased [Unknown]
  - Injection site pain [Unknown]
  - Nervousness [Recovering/Resolving]
  - Drug ineffective [Unknown]
